FAERS Safety Report 11032270 (Version 1)
Quarter: 2015Q2

REPORT INFORMATION
  Report Type: Spontaneous
  Country: US (occurrence: US)
  Receive Date: 20150415
  Receipt Date: 20150415
  Transmission Date: 20150821
  Serious: Yes (Hospitalization, Other)
  Sender: FDA-Public Use
  Company Number: US-GLAXOSMITHKLINE-US2015GSK050209

PATIENT
  Age: 31 Year
  Sex: Male

DRUGS (1)
  1. VENTOLIN HFA [Suspect]
     Active Substance: ALBUTEROL SULFATE
     Indication: ASTHMA
     Dosage: 90 UG, U

REACTIONS (5)
  - Influenza [Unknown]
  - Emergency care [Unknown]
  - Drug dose omission [Unknown]
  - HIV infection [Unknown]
  - Asthma [Unknown]

NARRATIVE: CASE EVENT DATE: 201409
